FAERS Safety Report 15309239 (Version 1)
Quarter: 2018Q3

REPORT INFORMATION
  Report Type: Spontaneous
  Country: US (occurrence: US)
  Receive Date: 20180811
  Receipt Date: 20180811
  Transmission Date: 20181010
  Serious: Yes (Life-Threatening, Hospitalization, Disabling)
  Sender: FDA-Public Use
  Company Number: None

PATIENT
  Age: 71 Year
  Sex: Male
  Weight: 72 kg

DRUGS (3)
  1. RYTARY [Concomitant]
     Active Substance: CARBIDOPA\LEVODOPA
  2. AMANTADINE. [Suspect]
     Active Substance: AMANTADINE HYDROCHLORIDE
     Indication: DYSKINESIA
     Route: 048
  3. SYMMETREL [Suspect]
     Active Substance: AMANTADINE HYDROCHLORIDE
     Indication: DYSKINESIA
     Route: 048

REACTIONS (11)
  - Renal failure [None]
  - Dysuria [None]
  - Loss of personal independence in daily activities [None]
  - Tremor [None]
  - Gait inability [None]
  - Hallucination [None]
  - Incoherent [None]
  - Mental impairment [None]
  - Blindness transient [None]
  - Impaired work ability [None]
  - Incontinence [None]

NARRATIVE: CASE EVENT DATE: 20170901
